FAERS Safety Report 20766413 (Version 3)
Quarter: 2022Q3

REPORT INFORMATION
  Report Type: Spontaneous
  Country: JP (occurrence: JP)
  Receive Date: 20220428
  Receipt Date: 20220713
  Transmission Date: 20221027
  Serious: Yes (Hospitalization, Other)
  Sender: FDA-Public Use
  Company Number: JP-ONO-2022JP010353

PATIENT

DRUGS (1)
  1. ONGENTYS [Suspect]
     Active Substance: OPICAPONE
     Indication: Parkinson^s disease
     Dosage: 1 DOSAGE FORM, UNKNOWN
     Route: 048
     Dates: start: 202109

REACTIONS (6)
  - Depressed level of consciousness [Recovered/Resolved]
  - Asthenia [Recovered/Resolved]
  - Dystonia [Unknown]
  - Dizziness [Recovered/Resolved]
  - Dizziness [Recovered/Resolved]
  - Dyskinesia [Unknown]
